FAERS Safety Report 6748120-0 (Version None)
Quarter: 2010Q2

REPORT INFORMATION
  Report Type: 
  Country: None (occurrence: None)
  Receive Date: 20100531
  Receipt Date: 20100524
  Transmission Date: 20101027
  Serious: Yes (Hospitalization)
  Sender: FDA-Public Use
  Company Number: JP-BRISTOL-MYERS SQUIBB COMPANY-15110125

PATIENT
  Age: 62 Year
  Sex: Male
  Weight: 86 kg

DRUGS (15)
  1. TAXOL [Suspect]
     Indication: LUNG NEOPLASM MALIGNANT
     Route: 041
     Dates: start: 20090312, end: 20090427
  2. CARBOPLATIN [Suspect]
     Indication: LUNG NEOPLASM MALIGNANT
     Route: 041
     Dates: start: 20090312, end: 20090427
  3. NORVASC [Concomitant]
     Indication: HYPERTENSION
     Dosage: TABLET
     Route: 048
  4. NU-LOTAN [Concomitant]
     Indication: HYPERTENSION
     Dosage: TABLET
     Route: 048
  5. FIVASA [Concomitant]
     Indication: BENIGN PROSTATIC HYPERPLASIA
     Dosage: FIVAS OD TABLET
     Route: 048
  6. GASTER D [Concomitant]
     Dosage: TABLET
     Route: 048
  7. LIPIDIL [Concomitant]
     Indication: DYSLIPIDAEMIA
     Dosage: TABLET
     Route: 048
  8. SELBEX [Concomitant]
     Dosage: CAPSULE
     Route: 048
  9. KIPRESS [Concomitant]
     Route: 048
  10. ACTONEL [Concomitant]
     Indication: OSTEOPOROSIS
     Dosage: TABLET
     Route: 048
  11. ALOSENN [Concomitant]
     Indication: CONSTIPATION
     Dosage: GRANULE
     Route: 048
  12. GRANISETRON [Concomitant]
     Indication: LUNG NEOPLASM MALIGNANT
     Dosage: INJECTION
     Route: 041
     Dates: start: 20090312, end: 20100427
  13. DEXART [Concomitant]
     Indication: LUNG NEOPLASM MALIGNANT
     Dosage: INJECTION
     Route: 041
     Dates: start: 20090312, end: 20090427
  14. VENA [Concomitant]
     Indication: LUNG NEOPLASM MALIGNANT
     Dosage: TABLET
     Route: 048
     Dates: start: 20090312, end: 20090427
  15. MAGLAX [Concomitant]
     Indication: CONSTIPATION
     Dosage: TABLET
     Route: 048

REACTIONS (1)
  - INTERSTITIAL LUNG DISEASE [None]
